FAERS Safety Report 10468833 (Version 5)
Quarter: 2014Q4

REPORT INFORMATION
  Report Type: Spontaneous
  Country: US (occurrence: US)
  Receive Date: 20140923
  Receipt Date: 20141031
  Transmission Date: 20150528
  Serious: Yes (Other)
  Sender: FDA-Public Use
  Company Number: CHPA2014US012206

PATIENT
  Age: 59 Year
  Sex: Female

DRUGS (14)
  1. VOLTAREN [Suspect]
     Active Substance: DICLOFENAC SODIUM
     Indication: ARTHRITIS
  2. VOLTAREN [Suspect]
     Active Substance: DICLOFENAC SODIUM
     Indication: INTERVERTEBRAL DISC DEGENERATION
     Dosage: A LITTLE BIT, UNK
     Route: 061
     Dates: start: 20140912, end: 20140913
  3. ACETYLSALICYLIC ACID [Suspect]
     Active Substance: ASPIRIN
     Indication: ANTICOAGULANT THERAPY
     Dosage: 81 MG, ALMOST DAILY
     Route: 048
     Dates: start: 1992
  4. ACETYLSALICYLIC ACID [Suspect]
     Active Substance: ASPIRIN
     Dosage: 325 MG, 2-3 TIMES A DAY PRN
     Route: 048
     Dates: start: 1984
  5. NITROGLYCERIN SR [Suspect]
     Active Substance: NITROGLYCERIN
     Dosage: UNK
     Route: 065
     Dates: start: 1984
  6. VOLTAREN [Suspect]
     Active Substance: DICLOFENAC SODIUM
     Indication: DRUG ADMINISTERED AT INAPPROPRIATE SITE
  7. VOLTAREN [Suspect]
     Active Substance: DICLOFENAC SODIUM
     Indication: OFF LABEL USE
  8. PRAVASTATIN [Suspect]
     Active Substance: PRAVASTATIN\PRAVASTATIN SODIUM
     Dosage: 1 DF, QD
     Route: 065
     Dates: start: 201406
  9. ARMOUR THYROID [Suspect]
     Active Substance: THYROID, PORCINE\THYROID, UNSPECIFIED
     Indication: HYPERTHYROIDISM
     Dosage: 1-2 DF, QD
     Route: 048
     Dates: start: 2012
  10. VOLTAREN [Suspect]
     Active Substance: DICLOFENAC SODIUM
     Indication: FIBROMYALGIA
  11. CLARITIN [Suspect]
     Active Substance: LORATADINE
     Dosage: UNK, QD PRN
     Route: 065
  12. PLAVIX [Suspect]
     Active Substance: CLOPIDOGREL BISULFATE
     Dosage: 2 DF, UNK
     Route: 048
     Dates: start: 2012
  13. VOLTAREN [Suspect]
     Active Substance: DICLOFENAC SODIUM
     Indication: BACK PAIN
     Dosage: A LITTLE BIT, UNK
     Route: 061
     Dates: start: 20140912, end: 20140913
  14. ALBUTEROL. [Suspect]
     Active Substance: ALBUTEROL
     Indication: ASTHMA
     Dosage: UNK, PRN
     Route: 055

REACTIONS (12)
  - Transient ischaemic attack [Not Recovered/Not Resolved]
  - Therapeutic response unexpected [Unknown]
  - Vomiting [Recovered/Resolved]
  - Hypoaesthesia [Recovered/Resolved]
  - Pain in extremity [Recovered/Resolved]
  - Hyperhidrosis [Recovered/Resolved]
  - Wrong technique in drug usage process [Unknown]
  - Hyperthyroidism [Not Recovered/Not Resolved]
  - Rectal haemorrhage [Recovered/Resolved]
  - Chest pain [Not Recovered/Not Resolved]
  - Cerebrovascular accident [Recovered/Resolved]
  - Confusional state [Recovered/Resolved]

NARRATIVE: CASE EVENT DATE: 201405
